FAERS Safety Report 25657256 (Version 2)
Quarter: 2025Q3

REPORT INFORMATION
  Report Type: Spontaneous
  Country: JP (occurrence: JP)
  Receive Date: 20250808
  Receipt Date: 20250904
  Transmission Date: 20251021
  Serious: Yes (Other)
  Sender: TAKEDA
  Company Number: JP-TAKEDA-2025TJP007988

PATIENT
  Age: 5 Decade
  Sex: Female

DRUGS (7)
  1. ENTYVIO [Suspect]
     Active Substance: VEDOLIZUMAB
     Indication: Colitis ulcerative
     Dosage: 300 MILLIGRAM, Q8WEEKS
     Dates: start: 20230901, end: 20250523
  2. MESALAMINE [Concomitant]
     Active Substance: MESALAMINE
  3. BELSOMRA [Concomitant]
     Active Substance: SUVOREXANT
  4. LIALDA [Concomitant]
     Active Substance: MESALAMINE
  5. MIYA-BM [Concomitant]
     Active Substance: CLOSTRIDIUM BUTYRICUM SPORES STRAIN M-55
  6. FAMOTIDINE [Concomitant]
     Active Substance: FAMOTIDINE
  7. URSO [Concomitant]
     Active Substance: URSODIOL

REACTIONS (1)
  - Therapeutic product effect incomplete [Unknown]
